FAERS Safety Report 8823197 (Version 2)
Quarter: 2012Q4

REPORT INFORMATION
  Report Type: 
  Country: US (occurrence: US)
  Receive Date: 20121003
  Receipt Date: 20121031
  Transmission Date: 20130627
  Serious: Yes (Death)
  Sender: FDA-Public Use
  Company Number: US-ROCHE-1131876

PATIENT
  Age: 68 Year
  Sex: Male

DRUGS (2)
  1. RITUXAN [Suspect]
     Indication: NON-HODGKIN^S LYMPHOMA
     Route: 065
     Dates: start: 20061012, end: 20061012
  2. RITUXAN [Suspect]
     Indication: B-CELL LYMPHOMA

REACTIONS (2)
  - Death [Fatal]
  - Malaise [Unknown]
